FAERS Safety Report 14487190 (Version 7)
Quarter: 2018Q3

REPORT INFORMATION
  Report Type: Spontaneous
  Country: CA (occurrence: CA)
  Receive Date: 20180205
  Receipt Date: 20180808
  Transmission Date: 20181010
  Serious: Yes (Other)
  Sender: FDA-Public Use
  Company Number: CA-CELLTRION INC.-2017CA011238

PATIENT

DRUGS (28)
  1. INFLECTRA [Suspect]
     Active Substance: INFLIXIMAB-DYYB
     Dosage: 575 MG, CYCLIC, EVERY 4 WEEKS
     Route: 042
     Dates: start: 20171116, end: 20171116
  2. INFLECTRA [Suspect]
     Active Substance: INFLIXIMAB-DYYB
     Dosage: UNK
     Dates: start: 20180226
  3. BETADERM                           /00008501/ [Concomitant]
     Dosage: UNK, 2X/DAYTO LEGS
     Route: 061
  4. INFLECTRA [Suspect]
     Active Substance: INFLIXIMAB-DYYB
     Dosage: 675 MG, EVERY 2 WEEKS
     Route: 042
     Dates: end: 20171212
  5. INFLECTRA [Suspect]
     Active Substance: INFLIXIMAB-DYYB
     Dosage: 865 MG CYCLIC, EVERY 2 WEEKS
     Route: 042
     Dates: start: 20180226, end: 20180326
  6. TYLENOL [Concomitant]
     Active Substance: ACETAMINOPHEN
     Dosage: 325 MG, UNK
     Route: 048
  7. INFLECTRA [Suspect]
     Active Substance: INFLIXIMAB-DYYB
     Dosage: 480 MG, CYCLIC EVERY 0, 2,6 WEEKS AND THEN EVERY 4 WEEKS
     Route: 042
     Dates: start: 20170810, end: 20171018
  8. IRON [Concomitant]
     Active Substance: IRON
     Dosage: 1 DF, DAILY
     Route: 048
  9. MOMETASONE [Concomitant]
     Active Substance: MOMETASONE
     Dosage: 1 SPRAY, 2X/DAY AS NEEDED
     Route: 065
  10. CIMZIA [Concomitant]
     Active Substance: CERTOLIZUMAB PEGOL
     Dosage: 200 MG, CYCLIC EVERY 2 WEEKS
     Route: 065
     Dates: start: 20170307
  11. INFLECTRA [Suspect]
     Active Substance: INFLIXIMAB-DYYB
     Dosage: 865 MG , CYCLIC, EVERY 2 WEEKS
     Dates: start: 20180326
  12. INFLECTRA [Suspect]
     Active Substance: INFLIXIMAB-DYYB
     Indication: RHEUMATOID ARTHRITIS
     Dosage: 285 MG, CYCLIC EVERY 0, 2,6 WEEKS AND THEN EVERY 8WEEKS
     Route: 042
     Dates: start: 20170810, end: 20170810
  13. INFLECTRA [Suspect]
     Active Substance: INFLIXIMAB-DYYB
     Dosage: 865 MG CYCLIC (EVERY 4WEEKS FOR 6 MONTHS);
  14. INFLECTRA [Suspect]
     Active Substance: INFLIXIMAB-DYYB
     Dosage: UNK
     Route: 065
     Dates: start: 20180226
  15. HYDROXYZINE BIOGARAN [Concomitant]
     Dosage: 25 MG, DAILY
     Route: 048
  16. FUROSEMIDE. [Concomitant]
     Active Substance: FUROSEMIDE
     Dosage: 20 MG, ALTERNATE DAY
     Route: 048
  17. INFLECTRA [Suspect]
     Active Substance: INFLIXIMAB-DYYB
     Dosage: 675 MG, EVERY 2 WEEKS
     Route: 042
     Dates: start: 20171212
  18. RABEPRAZOLE SANDOZ [Concomitant]
     Active Substance: RABEPRAZOLE
     Dosage: 20 MG, 2X/DAY
     Route: 048
  19. PREDNISONE. [Concomitant]
     Active Substance: PREDNISONE
     Dosage: UNK
     Dates: start: 2013
  20. INFLECTRA [Suspect]
     Active Substance: INFLIXIMAB-DYYB
     Dosage: 865 MG CYCLIC, EVERY 2 WEEKS
     Route: 042
     Dates: start: 20180226, end: 20180326
  21. INFLECTRA [Suspect]
     Active Substance: INFLIXIMAB-DYYB
     Dosage: 865 MG, CYCLIC (EVERY 4 WEEKS)
     Route: 042
     Dates: start: 20180226, end: 20180326
  22. ADVAIR HFA [Concomitant]
     Active Substance: FLUTICASONE PROPIONATE\SALMETEROL XINAFOATE
     Dosage: 1 PUFF,BID
     Route: 055
  23. INFLECTRA [Suspect]
     Active Substance: INFLIXIMAB-DYYB
     Dosage: 675 MG CYCLIC  EVERY 2 WEEKS
     Route: 042
     Dates: start: 20171128, end: 20171212
  24. INFLECTRA [Suspect]
     Active Substance: INFLIXIMAB-DYYB
     Dosage: 675 MG CYCLIC  EVERY 2 WEEKS
     Route: 042
     Dates: start: 20171130, end: 20171130
  25. INFLECTRA [Suspect]
     Active Substance: INFLIXIMAB-DYYB
     Dosage: UNK
     Route: 065
  26. INFLECTRA [Suspect]
     Active Substance: INFLIXIMAB-DYYB
     Dosage: UNK
  27. SULFASALAZINE. [Concomitant]
     Active Substance: SULFASALAZINE
     Indication: RHEUMATOID ARTHRITIS
     Dosage: 1000 MG EVERY MORNING AND 1500 MG AT BED TIME
     Route: 048
     Dates: start: 2015
  28. VENTOLIN [Concomitant]
     Active Substance: ALBUTEROL SULFATE
     Dosage: UNK, AS NEEDED
     Route: 055

REACTIONS (12)
  - Product use issue [Unknown]
  - Abdominal discomfort [Unknown]
  - Gastroenteritis viral [Unknown]
  - Nausea [Recovered/Resolved]
  - Wound secretion [Recovered/Resolved]
  - Pain in extremity [Unknown]
  - Abdominal pain upper [Recovering/Resolving]
  - Diarrhoea [Recovered/Resolved]
  - Drug ineffective [Unknown]
  - Malaise [Unknown]
  - Lower limb fracture [Not Recovered/Not Resolved]
  - Impaired healing [Recovered/Resolved]

NARRATIVE: CASE EVENT DATE: 2017
